FAERS Safety Report 23793876 (Version 1)
Quarter: 2024Q2

REPORT INFORMATION
  Report Type: Spontaneous
  Country: CN (occurrence: CN)
  Receive Date: 20240429
  Receipt Date: 20240429
  Transmission Date: 20240715
  Serious: Yes (Life-Threatening)
  Sender: FDA-Public Use
  Company Number: CN-BAYER-2024A062788

PATIENT
  Age: 52 Year
  Sex: Female

DRUGS (1)
  1. AVELOX [Suspect]
     Active Substance: MOXIFLOXACIN HYDROCHLORIDE
     Indication: Pneumonia
     Dosage: 200 ML, ONCE, 40 DROPS/MINUTE
     Route: 041
     Dates: start: 20240417, end: 20240417

REACTIONS (7)
  - Hypotension [Recovered/Resolved]
  - Respiratory rate increased [Recovering/Resolving]
  - Tremor [Recovering/Resolving]
  - Cold sweat [Recovering/Resolving]
  - Pallor [Recovering/Resolving]
  - Dizziness [Recovering/Resolving]
  - Heart rate increased [None]

NARRATIVE: CASE EVENT DATE: 20240417
